FAERS Safety Report 18935254 (Version 5)
Quarter: 2022Q1

REPORT INFORMATION
  Report Type: Spontaneous
  Country: US (occurrence: US)
  Receive Date: 20210224
  Receipt Date: 20220228
  Transmission Date: 20220424
  Serious: No
  Sender: FDA-Public Use
  Company Number: US-HRARD-202000819

PATIENT
  Age: 49 Year
  Sex: Female

DRUGS (26)
  1. LYSODREN [Suspect]
     Active Substance: MITOTANE
     Dosage: 15 TABLETS DAILY
     Dates: start: 20200725
  2. LYSODREN [Suspect]
     Active Substance: MITOTANE
     Dosage: 20 TABLETS DAILY PRESCRIBED, BUT ONLY TAKING 12-14 TABS CURRENTLY DUE TO AES
     Dates: start: 20201007
  3. LYSODREN [Suspect]
     Active Substance: MITOTANE
     Dosage: TAKE TOTAL OF 20 TABLETS DAILY IN DIVIDED DOSES, ONGOING
     Dates: start: 20201006
  4. LYSODREN [Suspect]
     Active Substance: MITOTANE
     Dosage: DECREASE FROM 12 PILLS TO 06 PILLS PER DAY
     Route: 048
     Dates: start: 202103
  5. METOPIRONE [Suspect]
     Active Substance: METYRAPONE
     Dosage: 3 CAPSULES TID PER DAY
     Dates: start: 202007
  6. METOPIRONE [Suspect]
     Active Substance: METYRAPONE
     Dosage: 3 CAPSULES THREE TIMES DAILY
     Route: 048
     Dates: start: 20200923
  7. SPIRONOLACTONE [Concomitant]
     Active Substance: SPIRONOLACTONE
  8. DULOXETINE [Concomitant]
     Active Substance: DULOXETINE
  9. METFORMIN [Concomitant]
     Active Substance: METFORMIN HYDROCHLORIDE
  10. VITAMIN D3 [Concomitant]
     Active Substance: CHOLECALCIFEROL
  11. CARVEDILOL [Concomitant]
     Active Substance: CARVEDILOL
  12. OLANZAPINE [Concomitant]
     Active Substance: OLANZAPINE
  13. Magnesium OX [Concomitant]
  14. NIFEDIPINE [Concomitant]
     Active Substance: NIFEDIPINE
  15. POTASSIUM CHLORIDE [Concomitant]
     Active Substance: POTASSIUM CHLORIDE
  16. LISINOPRIL [Concomitant]
     Active Substance: LISINOPRIL
  17. ONDANSETRON [Concomitant]
     Active Substance: ONDANSETRON
  18. PANTOPRAZOLE [Concomitant]
     Active Substance: PANTOPRAZOLE
  19. Dexamethason 1 mg [Concomitant]
  20. Biotene Dry Spray [Concomitant]
  21. Hydrocort 10 mg [Concomitant]
  22. Aprepitant 80 mg [Concomitant]
  23. ELIQUIS [Concomitant]
     Active Substance: APIXABAN
  24. AZITHROMYCIN [Concomitant]
     Active Substance: AZITHROMYCIN
     Dosage: UNKNOWN
     Route: 065
  25. GABAPENTIN [Concomitant]
     Active Substance: GABAPENTIN
  26. Triamcinolon [Concomitant]

REACTIONS (6)
  - Diarrhoea [Not Recovered/Not Resolved]
  - Nausea [Not Recovered/Not Resolved]
  - Rash pruritic [Unknown]
  - Intentional product use issue [Not Recovered/Not Resolved]
  - Off label use [Not Recovered/Not Resolved]
  - Product dose omission issue [Recovered/Resolved]

NARRATIVE: CASE EVENT DATE: 20200701
